FAERS Safety Report 6522235-4 (Version None)
Quarter: 2009Q4

REPORT INFORMATION
  Report Type: 
  Country: None (occurrence: None)
  Receive Date: 20091229
  Receipt Date: 20091229
  Transmission Date: 20100525
  Serious: Yes (Life-Threatening)
  Sender: FDA-Public Use
  Company Number: None

PATIENT
  Age: 92 Year
  Sex: Female
  Weight: 55 kg

DRUGS (1)
  1. ASPIRIN [Suspect]
     Indication: CORONARY ARTERY DISEASE
     Dosage: 325MG PO QD
     Route: 048
     Dates: end: 20090826

REACTIONS (3)
  - ACUTE MYOCARDIAL INFARCTION [None]
  - CONVULSION [None]
  - SUBDURAL HAEMATOMA [None]
